FAERS Safety Report 8694216 (Version 2)
Quarter: 2013Q4

REPORT INFORMATION
  Report Type: Spontaneous
  Country: US (occurrence: US)
  Receive Date: 20120731
  Receipt Date: 20131003
  Transmission Date: 20140711
  Serious: No
  Sender: FDA-Public Use
  Company Number: US-B.I. PHARMACEUTICALS,INC./RIDGEFIELD-2012-BP-16567BP

PATIENT
  Age: 71 Year
  Sex: Male

DRUGS (6)
  1. PRADAXA [Suspect]
     Indication: ATRIAL FIBRILLATION
     Dosage: 300 MG
     Route: 048
     Dates: start: 201105
  2. PRADAXA [Suspect]
     Dosage: 300 MG
     Route: 048
     Dates: start: 2011
  3. DIGOXIN [Concomitant]
     Indication: ATRIAL FIBRILLATION
  4. PROSCAR [Concomitant]
     Indication: BENIGN PROSTATIC HYPERPLASIA
     Dosage: 5 MG
     Route: 048
     Dates: start: 2002
  5. PROSCAR [Concomitant]
     Indication: PROSTATOMEGALY
  6. TAMSULOSIN [Concomitant]
     Indication: BENIGN PROSTATIC HYPERPLASIA
     Dosage: 0.4 MG
     Route: 048
     Dates: start: 2002

REACTIONS (5)
  - Musculoskeletal pain [Not Recovered/Not Resolved]
  - Arrhythmia [Recovered/Resolved]
  - Prostatomegaly [Not Recovered/Not Resolved]
  - Arthropathy [Not Recovered/Not Resolved]
  - Extra dose administered [Unknown]
